FAERS Safety Report 25244429 (Version 1)
Quarter: 2025Q2

REPORT INFORMATION
  Report Type: Spontaneous
  Country: SG (occurrence: CN)
  Receive Date: 20250428
  Receipt Date: 20250428
  Transmission Date: 20250717
  Serious: Yes (Hospitalization)
  Sender: ALKEM
  Company Number: SG-ALKEM LABORATORIES LIMITED-SG-ALKEM-2024-24391

PATIENT
  Age: 3 Year
  Sex: Female

DRUGS (8)
  1. SIROLIMUS [Suspect]
     Active Substance: SIROLIMUS
     Indication: Hyperinsulinaemic hypoglycaemia
     Dosage: 0.1 MILLIGRAM, QD, (S (0.5 MILLIGRAM PER SQUARE METER PER DAY)
     Route: 048
  2. SIROLIMUS [Suspect]
     Active Substance: SIROLIMUS
     Dosage: 4.4 MILLIGRAM/SQ. METER, QD, (INCREASE DOSE) (1.0 MILLIGRAM)
     Route: 065
  3. DIAZOXIDE [Concomitant]
     Active Substance: DIAZOXIDE
     Indication: Hyperinsulinaemic hypoglycaemia
     Route: 048
  4. DIAZOXIDE [Concomitant]
     Active Substance: DIAZOXIDE
     Dosage: 20 MILLIGRAM/KILOGRAM, QD (INCREASE DOSE)
     Route: 065
  5. DIAZOXIDE [Concomitant]
     Active Substance: DIAZOXIDE
     Dosage: 9 MILLIGRAM/KILOGRAM, QD, (MINIMUM DOSE) (AT 4 MONTHS OF AGE)
     Route: 065
  6. DIAZOXIDE [Concomitant]
     Active Substance: DIAZOXIDE
     Dosage: 11.7 MILLIGRAM/KILOGRAM, QD, (INCREASE DOSE)
     Route: 065
  7. DIAZOXIDE [Concomitant]
     Active Substance: DIAZOXIDE
     Dosage: 12.6 MILLIGRAM/KILOGRAM, QD
     Route: 048
  8. DIAZOXIDE [Concomitant]
     Active Substance: DIAZOXIDE
     Route: 065

REACTIONS (5)
  - Gastroenteritis [Recovered/Resolved]
  - Liver function test increased [Unknown]
  - Alanine aminotransferase increased [Recovered/Resolved]
  - Blood creatine phosphokinase increased [Recovered/Resolved]
  - Mouth ulceration [Recovered/Resolved]
